FAERS Safety Report 10003890 (Version 4)
Quarter: 2014Q4

REPORT INFORMATION
  Report Type: Report from Study
  Country: CA (occurrence: CA)
  Receive Date: 20140312
  Receipt Date: 20141224
  Transmission Date: 20150528
  Serious: Yes (Death, Life-Threatening)
  Sender: FDA-Public Use
  Company Number: PHHY2014CA030194

PATIENT
  Age: 53 Year
  Sex: Female

DRUGS (5)
  1. ACLASTA [Suspect]
     Active Substance: ZOLEDRONIC ACID
     Dosage: 5 MG, IN 15 MIN EVERY ONE YEAR
     Route: 042
     Dates: start: 20130118
  2. ACLASTA [Suspect]
     Active Substance: ZOLEDRONIC ACID
     Dosage: 5 MG, IN 15 MIN EVERY ONE YEAR
     Route: 042
     Dates: start: 20110930
  3. ACLASTA [Suspect]
     Active Substance: ZOLEDRONIC ACID
     Indication: OSTEOPOROSIS
     Dosage: 5 MG, IN 15 MIN EVERY ONE YEAR
     Route: 042
     Dates: start: 20100917
  4. ACLASTA [Suspect]
     Active Substance: ZOLEDRONIC ACID
     Dosage: 5 MG, IN 15 MIN EVERY ONE YEAR
     Route: 042
     Dates: start: 20121214
  5. FOSAMAX [Concomitant]
     Active Substance: ALENDRONATE SODIUM
     Indication: PRODUCT USED FOR UNKNOWN INDICATION
     Route: 065

REACTIONS (5)
  - Neoplasm malignant [Unknown]
  - Pain in extremity [Unknown]
  - Anaemia [Unknown]
  - Death [Fatal]
  - Histiocytosis haematophagic [Unknown]

NARRATIVE: CASE EVENT DATE: 20140715
